FAERS Safety Report 16974349 (Version 1)
Quarter: 2019Q4

REPORT INFORMATION
  Report Type: Other
  Country: ES (occurrence: ES)
  Receive Date: 20191030
  Receipt Date: 20191030
  Transmission Date: 20200122
  Serious: Yes (Hospitalization)
  Sender: FDA-Public Use
  Company Number: ES-APTAPHARMA INC.-2076175

PATIENT
  Age: 16 Year
  Sex: Male

DRUGS (11)
  1. OMEPRAZOLE. [Suspect]
     Active Substance: OMEPRAZOLE
     Route: 048
  2. ROBAXISAL [Suspect]
     Active Substance: ASPIRIN\METHOCARBAMOL
     Route: 048
  3. TRAMADOL. [Suspect]
     Active Substance: TRAMADOL
     Route: 048
  4. DIAZEPAM. [Suspect]
     Active Substance: DIAZEPAM
     Route: 048
  5. VALSARTAN. [Suspect]
     Active Substance: VALSARTAN
     Route: 048
  6. PREDNISONE. [Suspect]
     Active Substance: PREDNISONE
     Route: 048
  7. METFORMIN HYDROCHLORIDE. [Suspect]
     Active Substance: METFORMIN HYDROCHLORIDE
     Route: 048
  8. IBUPROFEN ORAL [Suspect]
     Active Substance: IBUPROFEN
     Indication: SUICIDE ATTEMPT
     Route: 048
  9. VENLAFAXINE [Suspect]
     Active Substance: VENLAFAXINE HYDROCHLORIDE
     Route: 048
  10. NAPROXEN. [Suspect]
     Active Substance: NAPROXEN
     Route: 048
  11. ACETAMINOPHEN. [Suspect]
     Active Substance: ACETAMINOPHEN
     Route: 048

REACTIONS (12)
  - Toxicity to various agents [Recovering/Resolving]
  - Dizziness [Recovering/Resolving]
  - Intentional overdose [Recovering/Resolving]
  - Oliguria [Recovering/Resolving]
  - Renal failure [Recovering/Resolving]
  - Metabolic acidosis [Recovering/Resolving]
  - Tachypnoea [Recovering/Resolving]
  - Proteinuria [Recovering/Resolving]
  - Tachycardia [Recovering/Resolving]
  - Arrhythmia [Recovering/Resolving]
  - Lactic acidosis [Recovering/Resolving]
  - Nausea [Recovering/Resolving]
